FAERS Safety Report 20171920 (Version 2)
Quarter: 2022Q1

REPORT INFORMATION
  Report Type: Spontaneous
  Country: US (occurrence: US)
  Receive Date: 20211210
  Receipt Date: 20220121
  Transmission Date: 20220423
  Serious: Yes (Other)
  Sender: FDA-Public Use
  Company Number: US-PFIZER INC-202101723127

PATIENT
  Age: 11 Year
  Sex: Female

DRUGS (1)
  1. PROVERA [Suspect]
     Active Substance: MEDROXYPROGESTERONE ACETATE
     Indication: Abnormal uterine bleeding
     Dosage: UNK

REACTIONS (3)
  - Haemorrhage [Unknown]
  - Therapeutic product effect incomplete [Unknown]
  - Off label use [Unknown]
